FAERS Safety Report 7095923-1 (Version None)
Quarter: 2010Q4

REPORT INFORMATION
  Report Type: 
  Country: None (occurrence: None)
  Receive Date: 20101111
  Receipt Date: 20090402
  Transmission Date: 20110411
  Serious: No
  Sender: FDA-Public Use
  Company Number: US-KINGPHARMUSA00001-K200900381

PATIENT
  Sex: Female
  Weight: 56.689 kg

DRUGS (3)
  1. LEVOXYL [Suspect]
     Indication: HYPOTHYROIDISM
     Dosage: 50 MCG, QD
     Route: 048
     Dates: start: 19950101
  2. ADRENAL CORTICAL EXTRACT [Concomitant]
     Dosage: UNK
     Dates: start: 20080901
  3. VITAMINS                           /90003601/ [Concomitant]
     Dosage: UNK
     Dates: start: 20080901

REACTIONS (4)
  - DIZZINESS [None]
  - DRUG INEFFECTIVE [None]
  - FATIGUE [None]
  - WEIGHT INCREASED [None]
